FAERS Safety Report 15767355 (Version 1)
Quarter: 2018Q4

REPORT INFORMATION
  Report Type: Spontaneous
  Country: US (occurrence: US)
  Receive Date: 20181227
  Receipt Date: 20181227
  Transmission Date: 20190205
  Serious: Yes (Other)
  Sender: FDA-Public Use
  Company Number: PHHY2018US191505

PATIENT
  Age: 16 Year
  Sex: Male

DRUGS (20)
  1. RISPERIDONE. [Suspect]
     Active Substance: RISPERIDONE
     Indication: INTELLECTUAL DISABILITY
     Dosage: 05 MG, BID
     Route: 065
  2. LITHIUM. [Concomitant]
     Active Substance: LITHIUM
     Indication: ADJUSTMENT DISORDER WITH MIXED DISTURBANCE OF EMOTION AND CONDUCT
  3. SOMATROPIN. [Concomitant]
     Active Substance: SOMATROPIN
     Indication: ADJUSTMENT DISORDER WITH MIXED DISTURBANCE OF EMOTION AND CONDUCT
  4. RISPERIDONE. [Suspect]
     Active Substance: RISPERIDONE
     Indication: ADJUSTMENT DISORDER WITH MIXED DISTURBANCE OF EMOTION AND CONDUCT
  5. SOMATROPIN. [Concomitant]
     Active Substance: SOMATROPIN
     Indication: POST-TRAUMATIC STRESS DISORDER
  6. TESTOSTERONE. [Concomitant]
     Active Substance: TESTOSTERONE
     Indication: PRADER-WILLI SYNDROME
     Dosage: 75 MG, QD
     Route: 030
  7. LITHIUM. [Concomitant]
     Active Substance: LITHIUM
     Indication: PRADER-WILLI SYNDROME
     Dosage: 600 MG, BID
     Route: 065
  8. SERTRALINE [Concomitant]
     Active Substance: SERTRALINE HYDROCHLORIDE
     Indication: PRADER-WILLI SYNDROME
     Dosage: 75 MG, QD
     Route: 065
  9. TESTOSTERONE. [Concomitant]
     Active Substance: TESTOSTERONE
     Indication: POST-TRAUMATIC STRESS DISORDER
  10. LITHIUM. [Concomitant]
     Active Substance: LITHIUM
     Indication: INTELLECTUAL DISABILITY
  11. LITHIUM. [Concomitant]
     Active Substance: LITHIUM
     Indication: POST-TRAUMATIC STRESS DISORDER
  12. SOMATROPIN. [Concomitant]
     Active Substance: SOMATROPIN
     Indication: PRADER-WILLI SYNDROME
     Dosage: 0.5 MG, QHS
     Route: 058
  13. TESTOSTERONE. [Concomitant]
     Active Substance: TESTOSTERONE
     Indication: ADJUSTMENT DISORDER WITH MIXED DISTURBANCE OF EMOTION AND CONDUCT
  14. SERTRALINE [Concomitant]
     Active Substance: SERTRALINE HYDROCHLORIDE
     Indication: POST-TRAUMATIC STRESS DISORDER
  15. SERTRALINE [Concomitant]
     Active Substance: SERTRALINE HYDROCHLORIDE
     Indication: ADJUSTMENT DISORDER WITH MIXED DISTURBANCE OF EMOTION AND CONDUCT
  16. SOMATROPIN. [Concomitant]
     Active Substance: SOMATROPIN
     Indication: INTELLECTUAL DISABILITY
  17. SERTRALINE [Concomitant]
     Active Substance: SERTRALINE HYDROCHLORIDE
     Indication: INTELLECTUAL DISABILITY
  18. RISPERIDONE. [Suspect]
     Active Substance: RISPERIDONE
     Indication: PRADER-WILLI SYNDROME
     Dosage: 0.25 MG, UNK
     Route: 065
  19. RISPERIDONE. [Suspect]
     Active Substance: RISPERIDONE
     Indication: POST-TRAUMATIC STRESS DISORDER
  20. TESTOSTERONE. [Concomitant]
     Active Substance: TESTOSTERONE
     Indication: INTELLECTUAL DISABILITY

REACTIONS (4)
  - Weight decreased [Unknown]
  - Drug ineffective [Unknown]
  - Metabolic disorder [Unknown]
  - Product use in unapproved indication [Unknown]
